FAERS Safety Report 6038002-4 (Version None)
Quarter: 2009Q1

REPORT INFORMATION
  Report Type: 
  Country: None (occurrence: None)
  Receive Date: 20090114
  Receipt Date: 20090114
  Transmission Date: 20090719
  Serious: Yes (Congenital Anomaly)
  Sender: FDA-Public Use
  Company Number: None

PATIENT
  Age: 30 Year
  Sex: Female

DRUGS (3)
  1. AMITRIPTYLINE HCL [Suspect]
     Dosage: 10 MG 1 XD PO
     Route: 048
     Dates: start: 20080101
  2. SUBOXONE [Suspect]
     Dosage: 8MG/2MG 2-3 XD PO
     Route: 048
     Dates: start: 20080101
  3. BUPROPION HCL [Concomitant]

REACTIONS (3)
  - ABORTION SPONTANEOUS [None]
  - DRUG EXPOSURE DURING PREGNANCY [None]
  - PREGNANCY [None]
